FAERS Safety Report 13263244 (Version 1)
Quarter: 2017Q1

REPORT INFORMATION
  Report Type: Spontaneous
  Country: IT (occurrence: IT)
  Receive Date: 20170223
  Receipt Date: 20170223
  Transmission Date: 20170428
  Serious: Yes (Hospitalization)
  Sender: FDA-Public Use
  Company Number: IT-STRIDES ARCOLAB LIMITED-2017SP002971

PATIENT

DRUGS (4)
  1. TACROLIMUS. [Suspect]
     Active Substance: TACROLIMUS
     Indication: RENAL TRANSPLANT
     Dosage: 1 MG/DAY, UNK
     Route: 065
  2. VANCOMYCIN [Suspect]
     Active Substance: VANCOMYCIN
     Indication: PERITONEAL CLOUDY EFFLUENT
     Dosage: 125 MG
     Route: 065
  3. ANTIBACTERIALS FOR SYSTEMIC USE [Suspect]
     Active Substance: UNSPECIFIED INGREDIENT
     Indication: PANCREATITIS ACUTE
     Dosage: UNK, UNKNOWN
     Route: 065
  4. TOBRAMYCIN. [Suspect]
     Active Substance: TOBRAMYCIN
     Indication: PERITONEAL CLOUDY EFFLUENT
     Dosage: 25 MG
     Route: 065

REACTIONS (23)
  - Haemodynamic instability [Recovered/Resolved]
  - Dyspnoea [Recovered/Resolved]
  - Decreased appetite [Recovered/Resolved]
  - Oxygen saturation decreased [Recovered/Resolved]
  - Discomfort [Recovered/Resolved]
  - Pancreatic pseudocyst [Recovered/Resolved]
  - Pancreatitis acute [Recovered/Resolved]
  - Nausea [Recovered/Resolved]
  - Fungal peritonitis [Recovered/Resolved]
  - Peritoneal cloudy effluent [Recovered/Resolved]
  - Anaemia [Recovered/Resolved]
  - Vomiting [Recovered/Resolved]
  - Acinetobacter infection [Recovered/Resolved]
  - Bacterial sepsis [Recovered/Resolved]
  - Systemic candida [Recovered/Resolved]
  - Melaena [Recovered/Resolved]
  - Subclavian vein thrombosis [Recovered/Resolved]
  - Pleural effusion [Recovered/Resolved]
  - Abdominal pain [Recovered/Resolved]
  - Leukocytosis [Recovered/Resolved]
  - Pulmonary embolism [Recovered/Resolved]
  - Pneumonia [Recovered/Resolved]
  - Pyrexia [Recovered/Resolved]
